FAERS Safety Report 6106811-9 (Version None)
Quarter: 2009Q1

REPORT INFORMATION
  Report Type: 
  Country: None (occurrence: None)
  Receive Date: 20090304
  Receipt Date: 20090210
  Transmission Date: 20090719
  Serious: Yes (Congenital Anomaly, Other)
  Sender: FDA-Public Use
  Company Number: JPI-P-006126

PATIENT
  Sex: Male

DRUGS (1)
  1. LUVOX CR [Suspect]
     Indication: DRUG EXPOSURE DURING PREGNANCY
     Dosage: I.U.
     Route: 015

REACTIONS (10)
  - CONGENITAL ANOMALY OF INNER EAR [None]
  - DEAFNESS CONGENITAL [None]
  - DOUBLE OUTLET RIGHT VENTRICLE [None]
  - FOETAL HEART RATE DECREASED [None]
  - FOETAL HEART RATE DISORDER [None]
  - LEARNING DISABILITY [None]
  - MATERNAL DRUGS AFFECTING FOETUS [None]
  - PREMATURE BABY [None]
  - PULMONARY VALVE STENOSIS [None]
  - SKULL MALFORMATION [None]
